FAERS Safety Report 5852384-5 (Version None)
Quarter: 2008Q3

REPORT INFORMATION
  Report Type: 
  Country: None (occurrence: None)
  Receive Date: 20080820
  Receipt Date: 20080820
  Transmission Date: 20090109
  Serious: Yes (Hospitalization)
  Sender: FDA-Public Use
  Company Number: None

PATIENT
  Age: 80 Year
  Sex: Male
  Weight: 90 kg

DRUGS (2)
  1. WARFARIN SODIUM [Suspect]
     Indication: ATRIAL FIBRILLATION
     Dosage: 6 MG PO
     Route: 048
     Dates: start: 20000901, end: 20080728
  2. WARFARIN SODIUM [Suspect]
     Dosage: 4 MG PO
     Route: 048
     Dates: start: 20000901, end: 20080728

REACTIONS (7)
  - CHEST PAIN [None]
  - GASTROINTESTINAL HAEMORRHAGE [None]
  - HAEMORRHAGE [None]
  - INTERNATIONAL NORMALISED RATIO ABNORMAL [None]
  - PAIN [None]
  - SENSATION OF PRESSURE [None]
  - THERAPEUTIC AGENT TOXICITY [None]
